FAERS Safety Report 7930332-1 (Version None)
Quarter: 2011Q4

REPORT INFORMATION
  Report Type: 
  Country: None (occurrence: None)
  Receive Date: 20111121
  Receipt Date: 20111116
  Transmission Date: 20120403
  Serious: Yes (Hospitalization)
  Sender: FDA-Public Use
  Company Number: US-ELI_LILLY_AND_COMPANY-US201111005598

PATIENT
  Age: 70 Year
  Sex: Female
  Weight: 113.1 kg

DRUGS (5)
  1. REMODULIN [Concomitant]
     Indication: COR PULMONALE CHRONIC
     Dosage: UNK
     Route: 042
     Dates: start: 20110922
  2. ADCIRCA [Suspect]
     Dosage: UNK, UNKNOWN
  3. TRACLEER [Concomitant]
  4. WARFARIN SODIUM [Concomitant]
  5. DIURETICS [Concomitant]

REACTIONS (2)
  - HOSPITALISATION [None]
  - DYSPNOEA [None]
